FAERS Safety Report 16362252 (Version 1)
Quarter: 2019Q2

REPORT INFORMATION
  Report Type: Spontaneous
  Country: US (occurrence: US)
  Receive Date: 20190515
  Receipt Date: 20190515
  Transmission Date: 20190711
  Serious: Yes (Hospitalization, Disabling)
  Sender: FDA-Public Use
  Company Number: None

PATIENT
  Sex: Female

DRUGS (5)
  1. MERTAZIPINE [Concomitant]
  2. HAIR DYE, NOS [Suspect]
     Active Substance: COSMETICS
  3. LORAZEPAM. [Suspect]
     Active Substance: LORAZEPAM
  4. XANAX [Concomitant]
     Active Substance: ALPRAZOLAM
  5. AMBIEN [Concomitant]
     Active Substance: ZOLPIDEM TARTRATE

REACTIONS (7)
  - Amnesia [None]
  - Eye irritation [None]
  - Therapeutic product effect decreased [None]
  - Nausea [None]
  - Product substitution issue [None]
  - Dry eye [None]
  - Depression [None]
